FAERS Safety Report 12536263 (Version 2)
Quarter: 2016Q3

REPORT INFORMATION
  Report Type: Spontaneous
  Country: US (occurrence: US)
  Receive Date: 20160707
  Receipt Date: 20160829
  Transmission Date: 20161109
  Serious: Yes (Other)
  Sender: FDA-Public Use
  Company Number: US-NOVOPROD-499334

PATIENT
  Age: 68 Year
  Sex: Male
  Weight: 65.76 kg

DRUGS (4)
  1. LEVEMIR [Suspect]
     Active Substance: INSULIN DETEMIR
     Indication: TYPE 1 DIABETES MELLITUS
     Dosage: 45 U QD IN AM
     Route: 058
     Dates: start: 1999
  2. NOVOLOG [Suspect]
     Active Substance: INSULIN ASPART
     Dosage: 22 U, QD BEFORE LUNCH
     Route: 058
     Dates: start: 1999
  3. NOVOLOG [Suspect]
     Active Substance: INSULIN ASPART
     Dosage: 22 U, QD BEFORE DINNER
     Route: 058
     Dates: start: 1999
  4. NOVOLOG [Suspect]
     Active Substance: INSULIN ASPART
     Indication: TYPE 1 DIABETES MELLITUS
     Dosage: 27 U, QD IN AM
     Route: 058
     Dates: start: 1999

REACTIONS (3)
  - Localised infection [Recovered/Resolved]
  - Localised infection [Recovered/Resolved]
  - Blood glucose increased [Not Recovered/Not Resolved]

NARRATIVE: CASE EVENT DATE: 2011
